FAERS Safety Report 10076389 (Version 1)
Quarter: 2014Q2

REPORT INFORMATION
  Report Type: Spontaneous
  Country: US (occurrence: None)
  Receive Date: 20140410
  Receipt Date: 20140410
  Transmission Date: 20141212
  Serious: Yes (Hospitalization)
  Sender: FDA-Public Use
  Company Number: UTC-046728

PATIENT
  Age: 56 Year
  Sex: Female
  Weight: 45.36 kg

DRUGS (3)
  1. REMODULIN (5 MILLIGRAM/MILLILITERS, INJECTION FOR INFUSION) (TREPROSTINIL SODIUM) [Suspect]
     Indication: COR PULMONALE CHRONIC
     Dosage: 161.568 UG/KG (0.1122 UG/KG,1 IN 1 MING), INTRAVENOUS DRIP
     Route: 041
     Dates: start: 20040130
  2. FLOLAN DILUENT (EPOPROSTENOL SODIUM) [Concomitant]
  3. REVATIO (SILDENAFIL CITRATE) [Concomitant]

REACTIONS (2)
  - Pneumonia [None]
  - Dyspnoea [None]
